FAERS Safety Report 5477806-3 (Version None)
Quarter: 2007Q4

REPORT INFORMATION
  Report Type: 
  Country: None (occurrence: None)
  Receive Date: 20071004
  Receipt Date: 20070914
  Transmission Date: 20080405
  Serious: Yes (Other)
  Sender: FDA-Public Use
  Company Number: US-SANOFI-SYNTHELABO-A03200705648

PATIENT
  Sex: Female

DRUGS (4)
  1. ASPIRIN [Concomitant]
     Dosage: UNK
     Route: 065
  2. RELAFEN [Concomitant]
     Dosage: UNK
     Route: 065
  3. AMBIEN [Suspect]
     Indication: INSOMNIA
     Dosage: UNK
     Route: 048
  4. EXCEDRIN [Concomitant]
     Dosage: UNK
     Route: 065

REACTIONS (7)
  - AMNESIA [None]
  - CONFUSIONAL STATE [None]
  - FACIAL BONES FRACTURE [None]
  - HEAD INJURY [None]
  - JOINT INJURY [None]
  - NECK INJURY [None]
  - SOMNAMBULISM [None]
